FAERS Safety Report 6600558-8 (Version None)
Quarter: 2010Q1

REPORT INFORMATION
  Report Type: 
  Country: None (occurrence: None)
  Receive Date: 20100223
  Receipt Date: 20100223
  Transmission Date: 20100710
  Serious: Yes (Hospitalization)
  Sender: FDA-Public Use
  Company Number: None

PATIENT
  Sex: Male
  Weight: 86.1834 kg

DRUGS (1)
  1. METFORMIN HYDROCHLORIDE [Suspect]
     Indication: TYPE 2 DIABETES MELLITUS
     Dosage: 250 MG 1X DAILY ORAL
     Route: 048
     Dates: start: 20071001

REACTIONS (3)
  - DIZZINESS [None]
  - DYSPEPSIA [None]
  - MALAISE [None]
